FAERS Safety Report 11627328 (Version 2)
Quarter: 2016Q1

REPORT INFORMATION
  Report Type: Spontaneous
  Country: US (occurrence: US)
  Receive Date: 20151013
  Receipt Date: 20160205
  Transmission Date: 20160525
  Serious: No
  Sender: FDA-Public Use
  Company Number: US-AMGEN-USASP2015087033

PATIENT
  Sex: Female

DRUGS (4)
  1. NEULASTA [Suspect]
     Active Substance: PEGFILGRASTIM
  2. NEUPOGEN [Suspect]
     Active Substance: FILGRASTIM
  3. NEUPOGEN [Suspect]
     Active Substance: FILGRASTIM
     Indication: NEUTROPHIL COUNT ABNORMAL
     Dosage: UNK
     Route: 065
  4. NEULASTA [Suspect]
     Active Substance: PEGFILGRASTIM
     Indication: PRODUCT USED FOR UNKNOWN INDICATION
     Dosage: UNK
     Route: 065

REACTIONS (2)
  - Neutrophil count abnormal [Unknown]
  - Device use error [Unknown]
